FAERS Safety Report 5859081-0 (Version None)
Quarter: 2008Q3

REPORT INFORMATION
  Report Type: 
  Country: None (occurrence: None)
  Receive Date: 20080825
  Receipt Date: 20080811
  Transmission Date: 20090109
  Serious: Yes (Hospitalization)
  Sender: FDA-Public Use
  Company Number: 8036084

PATIENT
  Age: 7 Year
  Sex: Female

DRUGS (7)
  1. PREDNISOLONE [Suspect]
     Indication: EVANS SYNDROME
  2. PREDNISOLONE [Suspect]
     Indication: EVANS SYNDROME
  3. PREDNISOLONE [Suspect]
     Indication: EVANS SYNDROME
  4. CYCLOSPORINE [Suspect]
     Indication: EVANS SYNDROME
  5. MYCOPHENOLATE MOFETIL [Suspect]
     Indication: EVANS SYNDROME
  6. IMMUNE GLOBULIN INTRAVENOUS (HUMAN) [Concomitant]
  7. RITUXIMAB [Concomitant]

REACTIONS (9)
  - ANOREXIA [None]
  - COUGH [None]
  - DILATATION VENTRICULAR [None]
  - HISTOLOGY ABNORMAL [None]
  - OXYGEN SATURATION DECREASED [None]
  - POST PROCEDURAL HAEMORRHAGE [None]
  - PULMONARY HYPERTENSION [None]
  - RESPIRATORY DISORDER [None]
  - TRICUSPID VALVE INCOMPETENCE [None]
